FAERS Safety Report 6250438-5 (Version None)
Quarter: 2009Q2

REPORT INFORMATION
  Report Type: 
  Country: None (occurrence: None)
  Receive Date: 20090630
  Receipt Date: 20090619
  Transmission Date: 20091009
  Serious: Yes (Other)
  Sender: FDA-Public Use
  Company Number: PHHY2009AU11846

PATIENT
  Sex: Female

DRUGS (4)
  1. ACLASTA [Suspect]
     Indication: OSTEOPOROSIS
     Dosage: UNK
     Dates: start: 20090324, end: 20090324
  2. PARIET [Concomitant]
     Dosage: 20 MG DAILY
  3. ISCOVER [Concomitant]
     Dosage: 75 MG DAILY
  4. LIPITOR [Concomitant]
     Dosage: 20 MG DAILY

REACTIONS (10)
  - BACK PAIN [None]
  - BEDRIDDEN [None]
  - CHEST PAIN [None]
  - GAIT DISTURBANCE [None]
  - GROIN PAIN [None]
  - MIDDLE INSOMNIA [None]
  - MUSCLE SPASMS [None]
  - MYOCARDIAL INFARCTION [None]
  - NECK PAIN [None]
  - VOMITING [None]
